FAERS Safety Report 22040851 (Version 1)
Quarter: 2023Q1

REPORT INFORMATION
  Report Type: Spontaneous
  Country: US (occurrence: US)
  Receive Date: 20230227
  Receipt Date: 20230227
  Transmission Date: 20230417
  Serious: Yes (Hospitalization)
  Sender: FDA-Public Use
  Company Number: US-MYLANLABS-2023M1020692

PATIENT
  Age: 58 Year
  Sex: Male

DRUGS (1)
  1. SEMGLEE (INSULIN GLARGINE-YFGN) [Suspect]
     Active Substance: INSULIN GLARGINE-YFGN
     Indication: Type 2 diabetes mellitus
     Dosage: 24 INTERNATIONAL UNIT, QD (ONCE DAILY )
     Route: 058

REACTIONS (5)
  - Illness [Unknown]
  - Oxygen saturation decreased [Unknown]
  - Device delivery system issue [Unknown]
  - Device mechanical issue [Unknown]
  - Device defective [Unknown]

NARRATIVE: CASE EVENT DATE: 20230221
